FAERS Safety Report 10573714 (Version 1)
Quarter: 2014Q4

REPORT INFORMATION
  Report Type: Spontaneous
  Country: US (occurrence: US)
  Receive Date: 20141110
  Receipt Date: 20141110
  Transmission Date: 20150529
  Serious: No
  Sender: FDA-Public Use
  Company Number: US-ASTRAZENECA-2014SE83569

PATIENT
  Age: 71 Year
  Sex: Female
  Weight: 65.3 kg

DRUGS (18)
  1. ENADLEX [Concomitant]
     Indication: BLADDER DISORDER
     Route: 048
     Dates: start: 2011
  2. ALIGN [Concomitant]
     Active Substance: BIFIDOBACTERIUM LONGUM SUBSP. INFANTIS
     Indication: DYSPEPSIA
     Route: 048
     Dates: start: 2014
  3. CALCIUM PLUS D PLUS MINERAL [Concomitant]
     Indication: MINERAL SUPPLEMENTATION
     Route: 048
     Dates: start: 2014
  4. LORAZEPAM. [Concomitant]
     Active Substance: LORAZEPAM
     Indication: ANTIDEPRESSANT THERAPY
     Route: 048
  5. ALIGN [Concomitant]
     Active Substance: BIFIDOBACTERIUM LONGUM SUBSP. INFANTIS
     Indication: IRRITABLE BOWEL SYNDROME
     Route: 048
     Dates: start: 2014
  6. VITAMIN B12 [Concomitant]
     Active Substance: CYANOCOBALAMIN
     Indication: HYPOVITAMINOSIS
     Route: 048
     Dates: start: 201408
  7. DELZICOL [Concomitant]
     Active Substance: MESALAMINE
     Indication: IRRITABLE BOWEL SYNDROME
     Route: 048
     Dates: start: 2014
  8. NEXIUM [Suspect]
     Active Substance: ESOMEPRAZOLE MAGNESIUM
     Indication: DYSPEPSIA
     Route: 048
  9. ATORBASTATIN [Concomitant]
     Indication: BLOOD CHOLESTEROL INCREASED
     Route: 048
     Dates: start: 2013
  10. GLIMEPIRIDE. [Concomitant]
     Active Substance: GLIMEPIRIDE
     Route: 048
  11. COLCRYS [Concomitant]
     Active Substance: COLCHICINE
     Indication: PAIN
     Route: 048
     Dates: start: 2014
  12. NEXIUM [Suspect]
     Active Substance: ESOMEPRAZOLE MAGNESIUM
     Indication: GASTROOESOPHAGEAL REFLUX DISEASE
     Route: 048
  13. NEXIUM [Suspect]
     Active Substance: ESOMEPRAZOLE MAGNESIUM
     Indication: DYSPEPSIA
     Route: 048
     Dates: start: 2014
  14. COLLAGEN [Concomitant]
     Active Substance: COLLAGEN
     Indication: ILL-DEFINED DISORDER
     Route: 048
     Dates: start: 2014
  15. BIOTIN [Concomitant]
     Active Substance: BIOTIN
  16. COHOSA [Concomitant]
     Indication: HOT FLUSH
     Route: 048
     Dates: start: 2014
  17. COLCRYS [Concomitant]
     Active Substance: COLCHICINE
     Indication: INTERVERTEBRAL DISC DEGENERATION
     Route: 048
     Dates: start: 2014
  18. ZINC [Concomitant]
     Active Substance: ZINC\ZINC CHLORIDE
     Indication: IMMUNE SYSTEM DISORDER
     Route: 048
     Dates: start: 2014

REACTIONS (10)
  - Fatigue [Unknown]
  - Insomnia [Unknown]
  - Intentional product misuse [Unknown]
  - Pain [Unknown]
  - Intervertebral disc degeneration [Unknown]
  - Drug ineffective [Unknown]
  - Gastrooesophageal reflux disease [Not Recovered/Not Resolved]
  - Skin wrinkling [Unknown]
  - Malaise [Unknown]
  - Nausea [Not Recovered/Not Resolved]

NARRATIVE: CASE EVENT DATE: 2014
